FAERS Safety Report 14162680 (Version 2)
Quarter: 2017Q4

REPORT INFORMATION
  Report Type: Spontaneous
  Country: SG (occurrence: SG)
  Receive Date: 20171106
  Receipt Date: 20171214
  Transmission Date: 20180321
  Serious: Yes (Other)
  Sender: FDA-Public Use
  Company Number: SG-MYLANLABS-2017M1070873

PATIENT
  Age: 25 Year
  Sex: Male

DRUGS (4)
  1. CLOZAPINE. [Suspect]
     Active Substance: CLOZAPINE
     Indication: AUTISM SPECTRUM DISORDER
     Dosage: 400 MG, QD
  2. CLOZAPINE. [Suspect]
     Active Substance: CLOZAPINE
     Indication: INTENTIONAL SELF-INJURY
  3. CLOZAPINE. [Suspect]
     Active Substance: CLOZAPINE
     Indication: ABNORMAL BEHAVIOUR
     Dosage: 500 MG, QD
  4. CLOZAPINE. [Suspect]
     Active Substance: CLOZAPINE
     Indication: INTELLECTUAL DISABILITY

REACTIONS (2)
  - Product use in unapproved indication [Unknown]
  - Generalised tonic-clonic seizure [Recovered/Resolved]
